FAERS Safety Report 9001026 (Version 2)
Quarter: 2014Q1

REPORT INFORMATION
  Report Type: Spontaneous
  Country: US (occurrence: US)
  Receive Date: 20130107
  Receipt Date: 20140121
  Transmission Date: 20141002
  Serious: Yes (Other)
  Sender: FDA-Public Use
  Company Number: US-BAYER-2012-136137

PATIENT
  Age: 71 Year
  Sex: Female

DRUGS (5)
  1. CIPRO [Suspect]
     Dosage: UNK
  2. ACETYLSALICYLIC ACID (} 100 MG) [Suspect]
  3. ZYRTEC [Concomitant]
  4. PROTONIX [Concomitant]
  5. LIDODERM [Concomitant]

REACTIONS (5)
  - Hallucination [None]
  - Tremor [None]
  - Drug hypersensitivity [None]
  - Drug hypersensitivity [None]
  - Epistaxis [None]
